FAERS Safety Report 10191804 (Version 1)
Quarter: 2014Q2

REPORT INFORMATION
  Report Type: Spontaneous
  Country: US (occurrence: None)
  Receive Date: 20140522
  Receipt Date: 20140522
  Transmission Date: 20141212
  Serious: No
  Sender: FDA-Public Use
  Company Number: None

PATIENT
  Age: 82 Year
  Sex: Female

DRUGS (1)
  1. AFINITOR [Suspect]
     Route: 048
     Dates: start: 20140304, end: 20140521

REACTIONS (9)
  - Fatigue [None]
  - Diarrhoea [None]
  - Nausea [None]
  - Pyrexia [None]
  - Oedema peripheral [None]
  - Headache [None]
  - Epistaxis [None]
  - Bone pain [None]
  - Cough [None]
